FAERS Safety Report 5409375-8 (Version None)
Quarter: 2007Q3

REPORT INFORMATION
  Report Type: 
  Country: None (occurrence: None)
  Receive Date: 20070807
  Receipt Date: 20070807
  Transmission Date: 20080115
  Serious: Yes (Death)
  Sender: FDA-Public Use
  Company Number: None

PATIENT
  Age: 27 Year
  Sex: Female
  Weight: 99.7913 kg

DRUGS (1)
  1. NUVARING [Suspect]
     Indication: CONTRACEPTION
     Dosage: NONE ONCE MONTHLY INSER INTRACERVICAL
     Route: 019
     Dates: start: 20060315, end: 20061003

REACTIONS (5)
  - FALL [None]
  - JOINT SWELLING [None]
  - LOSS OF CONSCIOUSNESS [None]
  - PAIN IN EXTREMITY [None]
  - PULMONARY EMBOLISM [None]
